FAERS Safety Report 15348788 (Version 2)
Quarter: 2020Q4

REPORT INFORMATION
  Report Type: Spontaneous
  Country: AU (occurrence: AU)
  Receive Date: 20180904
  Receipt Date: 20201119
  Transmission Date: 20210113
  Serious: Yes (Other)
  Sender: FDA-Public Use
  Company Number: AU-JNJFOC-20180836457

PATIENT
  Age: 83 Year
  Sex: Male

DRUGS (1)
  1. STELARA [Suspect]
     Active Substance: USTEKINUMAB
     Indication: PSORIASIS
     Route: 058

REACTIONS (8)
  - Dermatitis [Unknown]
  - Joint injury [Unknown]
  - Cervical vertebral fracture [Unknown]
  - Product dose omission issue [Unknown]
  - Psoriasis [Unknown]
  - Fall [Unknown]
  - Wound [Unknown]
  - Aortic aneurysm [Unknown]

NARRATIVE: CASE EVENT DATE: 20180720
